FAERS Safety Report 7292494-1 (Version None)
Quarter: 2011Q1

REPORT INFORMATION
  Report Type: 
  Country: None (occurrence: None)
  Receive Date: 20110215
  Receipt Date: 20110203
  Transmission Date: 20110831
  Serious: Yes (Hospitalization)
  Sender: FDA-Public Use
  Company Number: US-JNJFOC-20110202207

PATIENT
  Sex: Male
  Weight: 99.79 kg

DRUGS (7)
  1. VITAMINS NOS [Concomitant]
  2. STELARA [Suspect]
     Route: 058
  3. ZOLOFT [Concomitant]
     Route: 048
  4. STELARA [Suspect]
     Indication: ARTHRITIS
     Route: 058
  5. STELARA [Suspect]
     Indication: PSORIASIS
     Route: 058
  6. STELARA [Suspect]
     Route: 058
  7. PRILOSEC [Concomitant]
     Route: 048

REACTIONS (3)
  - DIPLOPIA [None]
  - CONFUSIONAL STATE [None]
  - DIZZINESS [None]
